FAERS Safety Report 6094791-4 (Version None)
Quarter: 2009Q1

REPORT INFORMATION
  Report Type: 
  Country: None (occurrence: None)
  Receive Date: 20090225
  Receipt Date: 20090210
  Transmission Date: 20090719
  Serious: Yes (Hospitalization)
  Sender: FDA-Public Use
  Company Number: 430005M09USA

PATIENT
  Age: 71 Year
  Sex: Male

DRUGS (18)
  1. NOVANTRONE [Suspect]
     Indication: PROSTATE CANCER
     Dosage: 24 MG, 1 IN 21 DAYS, INTRAVENOUS
     Route: 042
     Dates: start: 20080910, end: 20090112
  2. CETUXIMAB (CETUXIMAB) [Suspect]
     Indication: PROSTATE CANCER
     Dosage: 500 MG, 1 IN 1 WEEKS, INTRAVENOUS (NOT OTHERWISE SPECIFIED)
     Route: 042
     Dates: start: 20080910, end: 20090126
  3. REGULAR INSULIN [Concomitant]
  4. LANTUS [Concomitant]
  5. LEXAPRO [Concomitant]
  6. PREDNISONE TAB [Concomitant]
  7. ASPIRIN [Concomitant]
  8. HYOSCYAMINE (HYOSCYAMINE) [Concomitant]
  9. DICYCLOMINE [Concomitant]
  10. DYAZIDE [Concomitant]
  11. LISINOPRIL [Concomitant]
  12. CELEBREX [Concomitant]
  13. LIPITOR [Concomitant]
  14. ROBAXIN [Concomitant]
  15. PANGESTYME (NORTASE) [Concomitant]
  16. B12 (CYANOCOBALAMIN-TANNIN COMPLEX) [Concomitant]
  17. ZOLADEX [Concomitant]
  18. POTASSIUM (POTASSIUM) [Concomitant]

REACTIONS (8)
  - ABASIA [None]
  - BACTERAEMIA [None]
  - BLOOD CULTURE POSITIVE [None]
  - CITROBACTER INFECTION [None]
  - CONVULSION [None]
  - CULTURE URINE POSITIVE [None]
  - PNEUMONIA KLEBSIELLA [None]
  - SEPSIS [None]
